FAERS Safety Report 4860268-4 (Version None)
Quarter: 2005Q4

REPORT INFORMATION
  Report Type: 
  Country: None (occurrence: None)
  Receive Date: 20051215
  Receipt Date: 20051209
  Transmission Date: 20060501
  Serious: Yes (Other)
  Sender: FDA-Public Use
  Company Number: 2005166485

PATIENT
  Age: 42 Year
  Sex: Female
  Weight: 49.8957 kg

DRUGS (1)
  1. LISTERINE (MENTHOL, METHYL SALICYLATE, EUCALYPTOL, THYMOL) [Suspect]
     Indication: ALCOHOL POISONING
     Dosage: 1/2 A BOTTLE DAILY, ORAL
     Route: 048
     Dates: start: 20050101

REACTIONS (2)
  - FEELING DRUNK [None]
  - INTENTIONAL DRUG MISUSE [None]
